FAERS Safety Report 4507289-9 (Version None)
Quarter: 2004Q4

REPORT INFORMATION
  Report Type: 
  Country: None (occurrence: None)
  Receive Date: 20041025
  Receipt Date: 20040810
  Transmission Date: 20050328
  Serious: Yes (Hospitalization)
  Sender: FDA-Public Use
  Company Number: US-JNJFOC-20040602953

PATIENT
  Age: 65 Year
  Sex: Female
  Weight: 58.9676 kg

DRUGS (8)
  1. REMICADE [Suspect]
     Indication: RHEUMATOID ARTHRITIS
     Dosage: , 2 IN, INTRAVENOUS
     Route: 042
     Dates: start: 20040401
  2. METHOTREXATE SODIUM [Concomitant]
  3. ZOMIG [Concomitant]
  4. EXCEDRIN (MIGRAINE) [Concomitant]
  5. IMITREX [Concomitant]
  6. CELEBREX [Concomitant]
  7. DIPHENHYDRAMINE HCL [Concomitant]
  8. TYLENOL [Concomitant]

REACTIONS (2)
  - HEADACHE [None]
  - URTICARIA [None]
